FAERS Safety Report 5386289-3 (Version None)
Quarter: 2007Q3

REPORT INFORMATION
  Report Type: 
  Country: None (occurrence: None)
  Receive Date: 20070713
  Receipt Date: 20070706
  Transmission Date: 20080115
  Serious: Yes (Other)
  Sender: FDA-Public Use
  Company Number: PHEH2007US05359

PATIENT
  Age: 46 Year
  Sex: Female

DRUGS (11)
  1. ZELNORM [Suspect]
     Indication: IRRITABLE BOWEL SYNDROME
     Dosage: 6 MG, QD
     Route: 048
     Dates: start: 20040101, end: 20070410
  2. ASPIRIN [Concomitant]
     Dosage: 81 MG, QD
     Route: 048
  3. QUINAPRIL [Concomitant]
     Dosage: 20 MG, QD
     Route: 048
  4. SEROQUEL [Concomitant]
     Dosage: UNK, QHS
     Route: 048
  5. GABAPENTIN [Concomitant]
  6. DITROPAN [Concomitant]
  7. KLONOPIN [Concomitant]
  8. TRICOR [Concomitant]
  9. PRAVACHOL [Concomitant]
  10. ZYRTEC [Concomitant]
  11. ATENOLOL [Concomitant]

REACTIONS (5)
  - CEREBROVASCULAR ACCIDENT [None]
  - CONSTIPATION [None]
  - DIZZINESS [None]
  - DYSPNOEA [None]
  - PALPITATIONS [None]
